FAERS Safety Report 7514516-2 (Version None)
Quarter: 2011Q2

REPORT INFORMATION
  Report Type: 
  Country: None (occurrence: None)
  Receive Date: 20110601
  Receipt Date: 20101203
  Transmission Date: 20111010
  Serious: No
  Sender: FDA-Public Use
  Company Number: US-BAYER-2010-004783

PATIENT
  Age: 28 Year
  Sex: Male
  Weight: 79.365 kg

DRUGS (5)
  1. ULTRAVIST 150 [Suspect]
     Indication: DIAGNOSTIC PROCEDURE
     Dosage: 120 ML, ONCE
     Route: 042
     Dates: start: 20101203, end: 20101203
  2. BARIUM [Concomitant]
     Indication: COMPUTERISED TOMOGRAM ABDOMEN
  3. ULTRAVIST 150 [Suspect]
     Indication: COMPUTERISED TOMOGRAM ABDOMEN
  4. ULTRAVIST 150 [Suspect]
     Indication: SPLENOMEGALY
  5. BARIUM [Concomitant]
     Indication: DIAGNOSTIC PROCEDURE
     Dosage: UNK
     Route: 048
     Dates: start: 20101203, end: 20101203

REACTIONS (1)
  - VOMITING [None]
